FAERS Safety Report 7572493-2 (Version None)
Quarter: 2011Q2

REPORT INFORMATION
  Report Type: 
  Country: None (occurrence: None)
  Receive Date: 20110627
  Receipt Date: 20110616
  Transmission Date: 20111010
  Serious: Yes (Other)
  Sender: FDA-Public Use
  Company Number: FR-SP-E2011-03737

PATIENT
  Age: 33 Year
  Sex: Female

DRUGS (1)
  1. TUBERSOL [Suspect]
     Indication: TUBERCULIN TEST
     Route: 023
     Dates: start: 20110530, end: 20110530

REACTIONS (3)
  - SYNOVIAL CYST [None]
  - VACCINATION SITE PAIN [None]
  - VACCINATION SITE INDURATION [None]
